FAERS Safety Report 14587265 (Version 1)
Quarter: 2018Q1

REPORT INFORMATION
  Report Type: Spontaneous
  Country: US (occurrence: US)
  Receive Date: 20180228
  Receipt Date: 20180228
  Transmission Date: 20180509
  Serious: No
  Sender: FDA-Public Use
  Company Number: None

PATIENT
  Age: 81 Year
  Sex: Female
  Weight: 67.5 kg

DRUGS (5)
  1. EYLEA [Suspect]
     Active Substance: AFLIBERCEPT
     Indication: MACULAR DEGENERATION
     Dosage: ?          OTHER FREQUENCY:EVERY 6 WEEKS;?
     Route: 047
  2. CHOLESTEROL MED [Concomitant]
  3. ALTACE [Concomitant]
     Active Substance: RAMIPRIL
  4. LEVOXYL [Concomitant]
     Active Substance: LEVOTHYROXINE SODIUM
  5. CALCIUM [Concomitant]
     Active Substance: CALCIUM

REACTIONS (5)
  - Eye irritation [None]
  - Visual impairment [None]
  - Quality of life decreased [None]
  - Eye pain [None]
  - Facial pain [None]
